FAERS Safety Report 16227854 (Version 1)
Quarter: 2019Q2

REPORT INFORMATION
  Report Type: Spontaneous
  Country: US (occurrence: US)
  Receive Date: 20190423
  Receipt Date: 20190423
  Transmission Date: 20190711
  Serious: No
  Sender: FDA-Public Use
  Company Number: US-PFIZER INC-2018470169

PATIENT
  Sex: Male
  Weight: 79.38 kg

DRUGS (2)
  1. RAPAMUNE [Suspect]
     Active Substance: SIROLIMUS
     Indication: LIVER TRANSPLANT
     Dosage: 2 MG, 2X/DAY (2 TABLETS 2 TIMES DAILY)
  2. RAPAMUNE [Suspect]
     Active Substance: SIROLIMUS
     Dosage: 3 MG, 2X/DAY
     Dates: start: 201410

REACTIONS (2)
  - Blood triglycerides increased [Unknown]
  - Product use in unapproved indication [Unknown]
